FAERS Safety Report 10563386 (Version 1)
Quarter: 2014Q4

REPORT INFORMATION
  Report Type: Spontaneous
  Country: US (occurrence: US)
  Receive Date: 20141104
  Receipt Date: 20141104
  Transmission Date: 20150529
  Serious: No
  Sender: FDA-Public Use
  Company Number: US-PFIZER INC-2014302984

PATIENT
  Age: 65 Year
  Sex: Female

DRUGS (2)
  1. MEDROL [Suspect]
     Active Substance: METHYLPREDNISOLONE
     Dosage: UNK
  2. METHYLPREDNISOLONE. [Suspect]
     Active Substance: METHYLPREDNISOLONE
     Dosage: UNK

REACTIONS (2)
  - Swelling face [Unknown]
  - Drug hypersensitivity [Unknown]

NARRATIVE: CASE EVENT DATE: 20120525
